FAERS Safety Report 22118671 (Version 3)
Quarter: 2023Q1

REPORT INFORMATION
  Report Type: Report from Study
  Country: JP (occurrence: JP)
  Receive Date: 20230321
  Receipt Date: 20230331
  Transmission Date: 20230417
  Serious: Yes (Hospitalization)
  Sender: FDA-Public Use
  Company Number: JP-CHUGAI-2023008381

PATIENT
  Age: 51 Year
  Sex: Female
  Weight: 60.6 kg

DRUGS (6)
  1. ADO-TRASTUZUMAB EMTANSINE [Suspect]
     Active Substance: ADO-TRASTUZUMAB EMTANSINE
     Indication: Extramammary Paget^s disease
     Route: 042
     Dates: start: 20221206
  2. BILASTINE [Concomitant]
     Active Substance: BILASTINE
     Indication: Pruritus
     Dosage: 20 MILLIGRAM, QD
     Route: 048
     Dates: start: 20210524
  3. HEPARINOID [Concomitant]
     Indication: Pruritus
     Dosage: UNK, BID
     Route: 061
     Dates: start: 20220113
  4. LOCOID [Concomitant]
     Active Substance: HYDROCORTISONE BUTYRATE
     Indication: Pruritus
     Dosage: UNK, QD
     Route: 061
     Dates: start: 20220706
  5. LOCOID [Concomitant]
     Active Substance: HYDROCORTISONE BUTYRATE
     Indication: Vulval eczema
  6. AZUNOL [Concomitant]
     Indication: Pruritus
     Dosage: UNK, QD
     Route: 061
     Dates: start: 20220601

REACTIONS (1)
  - Cellulitis [Recovered/Resolved]

NARRATIVE: CASE EVENT DATE: 20230307
